FAERS Safety Report 4354210-2 (Version None)
Quarter: 2004Q2

REPORT INFORMATION
  Report Type: 
  Country: None (occurrence: None)
  Receive Date: 20040506
  Receipt Date: 20040409
  Transmission Date: 20050107
  Serious: Yes (Hospitalization, Other)
  Sender: FDA-Public Use
  Company Number: JP-BRISTOL-MYERS SQUIBB COMPANY-12556924

PATIENT
  Age: 63 Year
  Sex: Male

DRUGS (3)
  1. PARAPLATIN [Suspect]
     Indication: LUNG NEOPLASM MALIGNANT
     Route: 042
     Dates: start: 20030325, end: 20030325
  2. TAXOTERE [Suspect]
     Indication: LUNG NEOPLASM MALIGNANT
     Dates: start: 20030325, end: 20030325
  3. RADIOTHERAPY [Suspect]
     Indication: LUNG NEOPLASM MALIGNANT
     Dosage: DOSE = 39 GY
     Dates: start: 20030325, end: 20030325

REACTIONS (5)
  - DUODENITIS [None]
  - LEUKOPENIA [None]
  - OESOPHAGITIS [None]
  - PNEUMOPERITONEUM [None]
  - WHITE BLOOD CELL COUNT DECREASED [None]
